FAERS Safety Report 6061804-5 (Version None)
Quarter: 2009Q1

REPORT INFORMATION
  Report Type: 
  Country: None (occurrence: None)
  Receive Date: 20090202
  Receipt Date: 20090123
  Transmission Date: 20090719
  Serious: Yes (Life-Threatening, Hospitalization, Other)
  Sender: FDA-Public Use
  Company Number: US-ELI_LILLY_AND_COMPANY-US200901004350

PATIENT
  Sex: Female
  Weight: 113.38 kg

DRUGS (6)
  1. BYETTA [Suspect]
     Indication: TYPE 2 DIABETES MELLITUS
     Dosage: 5 UG, 2/D
     Route: 058
     Dates: start: 20070101, end: 20081202
  2. NORVASC [Concomitant]
     Indication: HYPERTENSION
     Dates: end: 20081201
  3. PLAVIX [Concomitant]
     Dosage: UNK, UNKNOWN
  4. FLONASE [Concomitant]
     Indication: NASAL CONGESTION
     Dosage: UNK, EACH EVENING
  5. NITROGLYCERIN [Concomitant]
     Dosage: UNK, AS NEEDED
  6. LEXAPRO [Concomitant]
     Indication: AFFECTIVE DISORDER
     Dosage: UNK, EACH EVENING

REACTIONS (6)
  - APNOEA [None]
  - BLINDNESS [None]
  - CEREBROVASCULAR ACCIDENT [None]
  - CONVULSION [None]
  - LOSS OF CONSCIOUSNESS [None]
  - MYOCARDIAL INFARCTION [None]
